FAERS Safety Report 18671478 (Version 1)
Quarter: 2020Q4

REPORT INFORMATION
  Report Type: Spontaneous
  Country: US (occurrence: US)
  Receive Date: 20201228
  Receipt Date: 20201228
  Transmission Date: 20210114
  Serious: No
  Sender: FDA-Public Use
  Company Number: US-PFIZER INC-2020507453

PATIENT
  Age: 68 Year
  Sex: Female

DRUGS (1)
  1. GABAPENTIN. [Suspect]
     Active Substance: GABAPENTIN
     Indication: SCIATICA
     Dosage: UNK, DAILY, (5-500 MG PER DAY)

REACTIONS (4)
  - Fatigue [Unknown]
  - Weight increased [Unknown]
  - Alopecia [Unknown]
  - Off label use [Unknown]
